FAERS Safety Report 21619490 (Version 1)
Quarter: 2022Q4

REPORT INFORMATION
  Report Type: Report from Study
  Country: US (occurrence: US)
  Receive Date: 20221121
  Receipt Date: 20221121
  Transmission Date: 20230113
  Serious: No
  Sender: FDA-Public Use
  Company Number: US-ABBVIE-4159092

PATIENT
  Sex: Female

DRUGS (4)
  1. HUMIRA [Suspect]
     Active Substance: ADALIMUMAB
     Indication: Crohn^s disease
     Dosage: FIRST ADMINISTRATION DATE: 11 OCT 2022, 4 TIMES A MONTH OR EVERY WEEK
     Route: 058
  2. HUMIRA [Suspect]
     Active Substance: ADALIMUMAB
     Route: 058
  3. Moderna [Concomitant]
     Indication: COVID-19 immunisation
     Dosage: ONCE
     Route: 030
  4. Moderna [Concomitant]
     Indication: COVID-19 immunisation
     Dosage: BOOSTER DOSE, ONCE
     Route: 030

REACTIONS (2)
  - Gastrointestinal inflammation [Unknown]
  - Drug level decreased [Unknown]

NARRATIVE: CASE EVENT DATE: 20220101
